FAERS Safety Report 25554060 (Version 1)
Quarter: 2025Q3

REPORT INFORMATION
  Report Type: Spontaneous
  Country: CA (occurrence: CA)
  Receive Date: 20250715
  Receipt Date: 20250715
  Transmission Date: 20251021
  Serious: Yes (Death, Other)
  Sender: RANBAXY
  Company Number: CA-SUN PHARMACEUTICAL INDUSTRIES LTD-2025R1-516414

PATIENT
  Age: 76 Year
  Sex: Female

DRUGS (3)
  1. WARFARIN [Suspect]
     Active Substance: WARFARIN
     Indication: Product used for unknown indication
     Dosage: 4 MILLIGRAM, DAILY
     Route: 065
  2. ENOXAPARIN SODIUM [Suspect]
     Active Substance: ENOXAPARIN SODIUM
     Indication: Product used for unknown indication
     Dosage: 60 MILLIGRAM, BID
     Route: 058
  3. HEPARIN [Suspect]
     Active Substance: HEPARIN SODIUM
     Indication: Product used for unknown indication
     Route: 042

REACTIONS (6)
  - Shock haemorrhagic [Fatal]
  - Haemoglobin decreased [Fatal]
  - Hypertension [Fatal]
  - Hypotension [Fatal]
  - Hypovolaemic shock [Fatal]
  - Retroperitoneal haemorrhage [Fatal]
